FAERS Safety Report 13743336 (Version 1)
Quarter: 2017Q3

REPORT INFORMATION
  Report Type: Report from Study
  Country: US (occurrence: US)
  Receive Date: 20170711
  Receipt Date: 20170711
  Transmission Date: 20171127
  Serious: Yes (Hospitalization)
  Sender: FDA-Public Use
  Company Number: US-VERTEX PHARMACEUTICALS-2017-003022

PATIENT
  Age: 14 Year
  Sex: Female

DRUGS (20)
  1. FLONASE [Concomitant]
     Active Substance: FLUTICASONE PROPIONATE
  2. NEURONTIN [Concomitant]
     Active Substance: GABAPENTIN
  3. CYMBALTA [Concomitant]
     Active Substance: DULOXETINE HYDROCHLORIDE
  4. AQUADEKS [Concomitant]
     Active Substance: MINERALS\VITAMINS
  5. CAYSTON [Concomitant]
     Active Substance: AZTREONAM
  6. BETHKIS [Concomitant]
     Active Substance: TOBRAMYCIN
  7. ORKAMBI [Suspect]
     Active Substance: IVACAFTOR\LUMACAFTOR
     Dosage: 200-125 MG
     Route: 048
     Dates: start: 20170317
  8. ZITHROMAX [Concomitant]
     Active Substance: AZITHROMYCIN DIHYDRATE
  9. PULMOZYME [Concomitant]
     Active Substance: DORNASE ALFA
  10. QVAR [Concomitant]
     Active Substance: BECLOMETHASONE DIPROPIONATE
  11. COENZYME Q10 [Concomitant]
     Active Substance: UBIDECARENONE
  12. SINGULAIR [Concomitant]
     Active Substance: MONTELUKAST SODIUM
  13. VITAMIN B12 [Concomitant]
     Active Substance: CYANOCOBALAMIN
  14. ALBUTEROL. [Concomitant]
     Active Substance: ALBUTEROL
  15. SODIUM CHLORIDE. [Concomitant]
     Active Substance: SODIUM CHLORIDE
  16. ZANTAC [Concomitant]
     Active Substance: RANITIDINE HYDROCHLORIDE
  17. ZYRTEC [Concomitant]
     Active Substance: CETIRIZINE HYDROCHLORIDE
  18. ORKAMBI [Suspect]
     Active Substance: IVACAFTOR\LUMACAFTOR
     Indication: CYSTIC FIBROSIS
     Dosage: 200-125 MG
     Route: 048
     Dates: start: 20160223, end: 20161205
  19. CREON [Concomitant]
     Active Substance: PANCRELIPASE AMYLASE\PANCRELIPASE LIPASE\PANCRELIPASE PROTEASE
  20. VITAMIN D [Concomitant]
     Active Substance: CHOLECALCIFEROL

REACTIONS (7)
  - Abdominal pain upper [Unknown]
  - Chronic sinusitis [Unknown]
  - Pseudomonas test positive [Unknown]
  - Vomiting [Unknown]
  - Rhinovirus infection [Unknown]
  - Staphylococcus test positive [Unknown]
  - Headache [Not Recovered/Not Resolved]

NARRATIVE: CASE EVENT DATE: 20161111
